FAERS Safety Report 4505180-5 (Version None)
Quarter: 2004Q4

REPORT INFORMATION
  Report Type: 
  Country: None (occurrence: None)
  Receive Date: 20041116
  Receipt Date: 20041103
  Transmission Date: 20050328
  Serious: No
  Sender: FDA-Public Use
  Company Number: 2004UW18413

PATIENT
  Age: 33 Year
  Sex: Male

DRUGS (9)
  1. SEROQUEL [Suspect]
     Indication: BIPOLAR DISORDER
  2. SEROQUEL [Suspect]
     Indication: BIPOLAR DISORDER
     Dosage: 50 MG QID PO
     Route: 048
     Dates: start: 20040819
  3. SEROQUEL [Suspect]
     Indication: BIPOLAR DISORDER
     Dosage: 100 MG BID PO
     Route: 048
     Dates: start: 20040820
  4. SEROQUEL [Suspect]
     Indication: BIPOLAR DISORDER
     Dosage: 50 MG PO
     Route: 048
     Dates: start: 20040820
  5. SEROQUEL [Suspect]
     Indication: BIPOLAR DISORDER
     Dosage: 400 MG PO
     Route: 048
     Dates: start: 20040824
  6. SEROQUEL [Suspect]
     Indication: BIPOLAR DISORDER
     Dosage: 600 MG PO
     Route: 048
     Dates: start: 20040825
  7. SEROQUEL [Suspect]
     Indication: BIPOLAR DISORDER
     Dosage: 800 MG PO
     Route: 048
     Dates: start: 20040826, end: 20040827
  8. DEPAKOTE [Suspect]
     Dosage: 1000 MG QD PO
     Route: 048
  9. ALCOHOL [Suspect]
     Dosage: MG

REACTIONS (21)
  - ABNORMAL BEHAVIOUR [None]
  - AGGRESSION [None]
  - ALCOHOLISM [None]
  - ANXIETY [None]
  - ASTHENIA [None]
  - CONFUSIONAL STATE [None]
  - DELUSION [None]
  - DISTURBANCE IN ATTENTION [None]
  - DRUG TOXICITY [None]
  - HAEMATOSPERMIA [None]
  - HEPATIC FUNCTION ABNORMAL [None]
  - HEPATIC STEATOSIS [None]
  - HYPERKINESIA [None]
  - LIVER FUNCTION TEST ABNORMAL [None]
  - LOSS OF CONSCIOUSNESS [None]
  - PARAESTHESIA [None]
  - PARANOIA [None]
  - PSYCHOTIC DISORDER [None]
  - RADIAL NERVE PALSY [None]
  - SPEECH DISORDER [None]
  - TREATMENT NONCOMPLIANCE [None]
